FAERS Safety Report 12972268 (Version 1)
Quarter: 2016Q4

REPORT INFORMATION
  Report Type: Spontaneous
  Country: JP (occurrence: JP)
  Receive Date: 20161124
  Receipt Date: 20161124
  Transmission Date: 20170207
  Serious: Yes (Death, Hospitalization)
  Sender: FDA-Public Use
  Company Number: JP-ACTELION-A-CH2016-145699

PATIENT
  Age: 20 Year
  Sex: Male
  Weight: 42.8 kg

DRUGS (4)
  1. EPOPROSTENOL SODIUM. [Suspect]
     Active Substance: EPOPROSTENOL SODIUM
     Indication: PRODUCT USED FOR UNKNOWN INDICATION
     Dosage: 93.8 NG/KG, PER MIN
     Route: 042
     Dates: start: 201602
  2. REMODULIN [Suspect]
     Active Substance: TREPROSTINIL
     Dosage: 40 NG/KG, UNK
     Route: 042
     Dates: start: 20160301
  3. REMODULIN [Suspect]
     Active Substance: TREPROSTINIL
     Indication: PRODUCT USED FOR UNKNOWN INDICATION
     Dosage: 84.42 NG/KG, PER MIN
     Route: 042
     Dates: start: 20160204, end: 201602
  4. EPOPROSTENOL SODIUM. [Suspect]
     Active Substance: EPOPROSTENOL SODIUM
     Dosage: 67 NG/KG, UNK
     Route: 042

REACTIONS (3)
  - Pain in extremity [Recovering/Resolving]
  - Death [Fatal]
  - Platelet count decreased [Recovering/Resolving]

NARRATIVE: CASE EVENT DATE: 20161020
